FAERS Safety Report 7458152-5 (Version None)
Quarter: 2011Q2

REPORT INFORMATION
  Report Type: 
  Country: None (occurrence: None)
  Receive Date: 20110504
  Receipt Date: 20110427
  Transmission Date: 20111010
  Serious: Yes (Other)
  Sender: FDA-Public Use
  Company Number: PHHY2011AE35824

PATIENT
  Age: 35 Year
  Sex: Female

DRUGS (5)
  1. LIORESAL [Concomitant]
     Dosage: UNK
  2. NEUROBION [Concomitant]
     Dosage: UNK
  3. AMANTADINE HCL [Concomitant]
     Dosage: UNK
  4. GILENYA [Suspect]
     Indication: MULTIPLE SCLEROSIS
     Dosage: 0.5 MG, DAILY
     Route: 048
     Dates: start: 20110128, end: 20110427
  5. VITAMIN D [Concomitant]
     Dosage: UNK

REACTIONS (3)
  - LYMPHOCYTE COUNT DECREASED [None]
  - WHITE BLOOD CELL COUNT DECREASED [None]
  - VIRAL INFECTION [None]
